FAERS Safety Report 19104746 (Version 5)
Quarter: 2022Q1

REPORT INFORMATION
  Report Type: Spontaneous
  Country: US (occurrence: US)
  Receive Date: 20210408
  Receipt Date: 20220327
  Transmission Date: 20220423
  Serious: Yes (Hospitalization, Other)
  Sender: FDA-Public Use
  Company Number: US-BLUEPRINT MEDICINES CORPORATION-SP-US-2021-000457

PATIENT
  Age: 59 Year
  Sex: Female

DRUGS (9)
  1. AYVAKIT [Suspect]
     Active Substance: AVAPRITINIB
     Indication: Gastrointestinal stromal tumour
     Route: 048
     Dates: start: 20191118
  2. AYVAKIT [Suspect]
     Active Substance: AVAPRITINIB
     Dosage: TAKE 2 TABLET BY MOUTH DAILY ON MON/WED/FRI AND 1 TABLET ON TUE/THUR/SAT/SUN ON EMPTY STOMACH
     Route: 048
     Dates: start: 20191118
  3. AYVAKIT [Suspect]
     Active Substance: AVAPRITINIB
     Dosage: TAKE 100MG TABLET ON SAT, SUN ALONG WITH 200MG TABLET ON MON, TUES, WED, THURS, FRI
     Route: 048
     Dates: start: 20191118
  4. AYVAKIT [Suspect]
     Active Substance: AVAPRITINIB
     Dosage: 2 TABLETS (200MG) ON MON, TUES, WED, THURS AND FRI AND 1 TABLET (100MG) ON SAT AND SUN
     Route: 048
     Dates: start: 20200601
  5. PREDNISONE [Concomitant]
     Active Substance: PREDNISONE
     Indication: Product used for unknown indication
     Route: 065
  6. ZOFRAN [Concomitant]
     Active Substance: ONDANSETRON HYDROCHLORIDE
     Indication: Product used for unknown indication
     Route: 065
  7. POTASSIUM CHLORIDE [Concomitant]
     Active Substance: POTASSIUM CHLORIDE
     Indication: Product used for unknown indication
     Route: 065
  8. OLMESARTAN [Concomitant]
     Active Substance: OLMESARTAN
     Indication: Product used for unknown indication
     Route: 065
  9. FENTANYL [Concomitant]
     Active Substance: FENTANYL
     Indication: Product used for unknown indication
     Route: 065

REACTIONS (14)
  - Haematemesis [Unknown]
  - Hepatic neoplasm [Unknown]
  - Tumour pain [Unknown]
  - Pain [Unknown]
  - Drug ineffective [Unknown]
  - Blood test abnormal [Unknown]
  - Multiple allergies [Unknown]
  - Cholelithiasis [Unknown]
  - Gastrointestinal inflammation [Unknown]
  - Increased appetite [Unknown]
  - Nausea [Unknown]
  - Fatigue [Unknown]
  - Abdominal neoplasm [Unknown]
  - Off label use [Unknown]

NARRATIVE: CASE EVENT DATE: 20220213
